FAERS Safety Report 7261187-9 (Version None)
Quarter: 2011Q1

REPORT INFORMATION
  Report Type: 
  Country: None (occurrence: None)
  Receive Date: 20110130
  Receipt Date: 20100915
  Transmission Date: 20110831
  Serious: No
  Sender: FDA-Public Use
  Company Number: US-ABBOTT-10P-163-0672020-00

PATIENT
  Sex: Female
  Weight: 52.21 kg

DRUGS (3)
  1. PRED FORTE [Concomitant]
     Indication: UVEITIS
  2. HUMIRA [Suspect]
     Indication: UVEITIS
  3. METHOTREXATE [Concomitant]
     Indication: UVEITIS
     Dates: start: 19950101

REACTIONS (4)
  - FATIGUE [None]
  - PYREXIA [None]
  - NAUSEA [None]
  - FOOD INTOLERANCE [None]
